FAERS Safety Report 8781594 (Version 1)
Quarter: 2012Q4

REPORT INFORMATION
  Report Type: 
  Country: US (occurrence: US)
  Receive Date: 20120913
  Receipt Date: 20120913
  Transmission Date: 20130627
  Serious: No
  Sender: FDA-Public Use
  Company Number: US-VERTEX PHARMACEUTICAL INC.-AE-2012-007806

PATIENT
  Age: 63 Year
  Sex: Male
  Weight: 77.27 kg

DRUGS (3)
  1. INCIVEK [Suspect]
     Indication: HEPATITIS C
     Route: 048
     Dates: start: 20120415
  2. RIBAVIRIN [Concomitant]
     Indication: HEPATITIS C
     Dates: start: 20120415
  3. PEGASYS [Concomitant]
     Indication: HEPATITIS C
     Route: 058
     Dates: start: 20120415

REACTIONS (7)
  - Dyspnoea [Not Recovered/Not Resolved]
  - Chest discomfort [Not Recovered/Not Resolved]
  - Dizziness [Not Recovered/Not Resolved]
  - Anaemia [Not Recovered/Not Resolved]
  - Nausea [Not Recovered/Not Resolved]
  - Rash generalised [Not Recovered/Not Resolved]
  - Pruritus [Not Recovered/Not Resolved]
